FAERS Safety Report 5938556-X (Version None)
Quarter: 2008Q4

REPORT INFORMATION
  Report Type: 
  Country: None (occurrence: None)
  Receive Date: 20081103
  Receipt Date: 20081024
  Transmission Date: 20090506
  Serious: Yes (Hospitalization, Other)
  Sender: FDA-Public Use
  Company Number: PHHY2008IT26157

PATIENT
  Sex: Female

DRUGS (6)
  1. ESTRADERM [Suspect]
     Indication: MENOPAUSAL DISORDER
     Dosage: 25MCG PER DAY
     Route: 062
     Dates: start: 20051001, end: 20081008
  2. PROPAFENONE HYDROCHLORIDE [Suspect]
     Indication: ATRIAL FIBRILLATION
     Dosage: 850MG PER DAY
     Route: 048
     Dates: start: 20080501, end: 20081008
  3. QUINAZIDE [Concomitant]
     Dosage: 20MG+12.5 MG
  4. CARDURA [Concomitant]
     Dosage: 2MG
     Route: 048
  5. LASITONE [Concomitant]
     Dosage: 25MG+37MG
     Route: 048
  6. FARLUTAL [Concomitant]
     Dosage: 10MG
     Route: 048

REACTIONS (9)
  - ASTHENIA [None]
  - BLOOD BILIRUBIN INCREASED [None]
  - BLOOD CREATININE INCREASED [None]
  - COLD SWEAT [None]
  - DYSPNOEA [None]
  - HEART RATE DECREASED [None]
  - HEPATITIS CHOLESTATIC [None]
  - SYNCOPE [None]
  - TRANSAMINASES INCREASED [None]
